FAERS Safety Report 14457204 (Version 6)
Quarter: 2019Q1

REPORT INFORMATION
  Report Type: Spontaneous
  Country: FR (occurrence: FR)
  Receive Date: 20180130
  Receipt Date: 20190204
  Transmission Date: 20190417
  Serious: Yes (Other)
  Sender: FDA-Public Use
  Company Number: FR-MYLANLABS-2018M1005385

PATIENT
  Age: 32 Year
  Sex: Female
  Weight: 77.96 kg

DRUGS (7)
  1. STELARA [Interacting]
     Active Substance: USTEKINUMAB
     Indication: PSORIATIC ARTHROPATHY
     Dosage: 45 MG, Q3W
     Route: 058
     Dates: start: 201607
  2. STELARA [Interacting]
     Active Substance: USTEKINUMAB
     Dosage: 45 MG, UNK
     Route: 058
  3. TRAMADOL. [Suspect]
     Active Substance: TRAMADOL
     Indication: PSORIATIC ARTHROPATHY
     Dosage: UNK
     Route: 048
     Dates: start: 2016
  4. NAPROXENE BAYER [Interacting]
     Active Substance: NAPROXEN
     Indication: PSORIATIC ARTHROPATHY
     Dosage: 550 MG, BID (1100 MG, QD)
     Route: 048
     Dates: start: 201611
  5. STELARA [Interacting]
     Active Substance: USTEKINUMAB
     Dosage: 45 MG, Q3W
     Route: 058
     Dates: start: 201702
  6. USTEKINUMAB [Interacting]
     Active Substance: USTEKINUMAB
     Indication: PSORIATIC ARTHROPATHY
     Dosage: 45 MILLIGRAM, Q3W
     Route: 058
     Dates: start: 201702
  7. LIOTHYRONINE [Interacting]
     Active Substance: LIOTHYRONINE
     Indication: CONTRACEPTION
     Route: 015

REACTIONS (5)
  - Exposure during pregnancy [Recovered/Resolved with Sequelae]
  - Device ineffective [Recovered/Resolved with Sequelae]
  - Inappropriate schedule of product administration [Unknown]
  - Off label use [Unknown]
  - Drug interaction [Unknown]

NARRATIVE: CASE EVENT DATE: 201607
